FAERS Safety Report 8117200-X (Version None)
Quarter: 2012Q1

REPORT INFORMATION
  Report Type: 
  Country: None (occurrence: None)
  Receive Date: 20120206
  Receipt Date: 20120127
  Transmission Date: 20120608
  Serious: Yes (Other)
  Sender: FDA-Public Use
  Company Number: US-ABBOTT-12P-163-0899660-00

PATIENT
  Age: 39 Year
  Sex: Female

DRUGS (4)
  1. PROPRANOLOL [Concomitant]
     Indication: PALPITATIONS
  2. METHOTREXATE [Concomitant]
     Indication: PRODUCT USED FOR UNKNOWN INDICATION
  3. FROVA [Concomitant]
     Indication: HEADACHE
  4. HUMIRA [Suspect]
     Indication: RHEUMATOID ARTHRITIS
     Route: 058
     Dates: start: 20110101, end: 20120109

REACTIONS (3)
  - TOOTH ABSCESS [None]
  - ORAL CAVITY FISTULA [None]
  - INFECTION [None]
